FAERS Safety Report 7548403-0 (Version None)
Quarter: 2011Q2

REPORT INFORMATION
  Report Type: 
  Country: None (occurrence: None)
  Receive Date: 20110615
  Receipt Date: 20110610
  Transmission Date: 20111010
  Serious: Yes (Life-Threatening)
  Sender: FDA-Public Use
  Company Number: AU-ASTELLAS-2011US002396

PATIENT
  Sex: Female
  Weight: 96 kg

DRUGS (2)
  1. AMBISOME [Suspect]
     Indication: PRODUCT USED FOR UNKNOWN INDICATION
     Dosage: 960 MG, WEEKLY
     Route: 042
     Dates: start: 20110519, end: 20110519
  2. CHEMOTHERAPEUTICS NOS [Concomitant]
     Indication: ACUTE MYELOID LEUKAEMIA
     Dosage: UNK
     Route: 065
     Dates: start: 20110516

REACTIONS (2)
  - SHOCK [None]
  - INFUSION RELATED REACTION [None]
